FAERS Safety Report 6196854-1 (Version None)
Quarter: 2009Q2

REPORT INFORMATION
  Report Type: 
  Country: None (occurrence: None)
  Receive Date: 20090520
  Receipt Date: 20090514
  Transmission Date: 20091009
  Serious: Yes (Death, Other)
  Sender: FDA-Public Use
  Company Number: US-SP-2009-02102

PATIENT
  Age: 38 Year
  Sex: Male

DRUGS (5)
  1. IMOVAX RABIES I.D. [Suspect]
     Indication: IMMUNISATION
     Route: 030
     Dates: start: 20090504
  2. IMOVAX RABIES I.D. [Suspect]
     Route: 030
     Dates: start: 20090504
  3. IMOGAM RABIES-HT [Suspect]
     Indication: IMMUNISATION
     Route: 065
     Dates: start: 20090504
  4. IMOGAM RABIES-HT [Suspect]
     Route: 065
     Dates: start: 20090504
  5. RABIES VACCINE [Suspect]
     Indication: IMMUNISATION
     Route: 065
     Dates: start: 20090507

REACTIONS (11)
  - ARTHRALGIA [None]
  - CHEST DISCOMFORT [None]
  - DEATH [None]
  - HEADACHE [None]
  - HYPERSOMNIA [None]
  - LETHARGY [None]
  - MALAISE [None]
  - MOBILITY DECREASED [None]
  - NAUSEA [None]
  - PYREXIA [None]
  - VOMITING [None]
